FAERS Safety Report 4266728-1 (Version None)
Quarter: 2004Q1

REPORT INFORMATION
  Report Type: 
  Country: None (occurrence: None)
  Receive Date: 20040108
  Receipt Date: 20031209
  Transmission Date: 20041129
  Serious: Yes (Hospitalization)
  Sender: FDA-Public Use
  Company Number: US-GLAXOSMITHKLINE-A0442748A

PATIENT
  Age: 61 Year
  Sex: Female
  Weight: 58.5 kg

DRUGS (17)
  1. NAVELBINE [Suspect]
     Indication: NON-SMALL CELL LUNG CANCER
     Dosage: 43MGK SEE DOSAGE TEXT
     Route: 042
     Dates: start: 20031024
  2. GEMCITABINE [Suspect]
     Indication: NON-SMALL CELL LUNG CANCER
     Dosage: 1710MGK SEE DOSAGE TEXT
     Route: 042
     Dates: start: 20031024
  3. ASPIRIN [Concomitant]
     Indication: CARDIOVASCULAR DISORDER
     Dosage: 81MG PER DAY
     Route: 048
  4. PLAVIX [Concomitant]
     Indication: CARDIOVASCULAR DISORDER
     Dosage: 75MG PER DAY
  5. LISINOPRIL [Concomitant]
     Indication: HYPERTENSION
     Dosage: 40MG PER DAY
  6. HYDROCHLOROTHIAZIDE [Concomitant]
     Indication: HYPERTENSION
     Dosage: 25MG PER DAY
  7. ATENOLOL [Concomitant]
     Indication: HYPERTENSION
     Dosage: 100MG PER DAY
  8. ALPRAZOLAM [Concomitant]
     Dosage: .3MG AS REQUIRED
  9. COUMADIN [Concomitant]
     Indication: CATHETER RELATED COMPLICATION
     Dates: start: 20031015
  10. SALAGEN [Concomitant]
     Indication: DRY MOUTH
     Dosage: 5MG THREE TIMES PER DAY
     Route: 048
     Dates: start: 20031031
  11. ZOFRAN [Concomitant]
     Indication: VOMITING
     Dosage: .24MG THREE TIMES PER DAY
     Dates: start: 20031024, end: 20031124
  12. BUPROPRION HCL [Concomitant]
     Indication: DEPRESSION
  13. TIZANIDINE HCL [Concomitant]
     Indication: MUSCLE SPASMS
  14. MIRTAZAPINE [Concomitant]
     Indication: DEPRESSION
     Dosage: 30MG AT NIGHT
  15. AMBIEN [Concomitant]
     Indication: SLEEP DISORDER
     Dosage: 10MG AS REQUIRED
  16. OXYBUTYNIN [Concomitant]
     Indication: URINARY INCONTINENCE
     Dosage: 5MG AT NIGHT
  17. COMPAZINE [Concomitant]
     Dosage: 10MG AS REQUIRED

REACTIONS (6)
  - ASTHENIA [None]
  - CELLULITIS [None]
  - DEHYDRATION [None]
  - HYPOTENSION [None]
  - NEUTROPENIA [None]
  - SYNCOPE [None]
